FAERS Safety Report 13331653 (Version 2)
Quarter: 2019Q4

REPORT INFORMATION
  Report Type: Spontaneous
  Country: US (occurrence: US)
  Receive Date: 20170314
  Receipt Date: 20191025
  Transmission Date: 20200122
  Serious: No
  Sender: FDA-Public Use
  Company Number: US-JNJFOC-20170108051

PATIENT
  Age: 77 Year
  Sex: Female
  Weight: 95.34 kg

DRUGS (4)
  1. PARACETAMOL [Suspect]
     Active Substance: ACETAMINOPHEN
     Indication: ARTHRALGIA
     Dosage: TWICE IN 2 HOURS
     Route: 048
     Dates: start: 20170108
  2. WARFARIN [Concomitant]
     Active Substance: WARFARIN
     Indication: ANTICOAGULANT THERAPY
     Route: 065
  3. HYDRALAZINE [Concomitant]
     Active Substance: HYDRALAZINE HYDROCHLORIDE
     Indication: HYPERTENSION
     Route: 065
  4. VITAMIN D [Concomitant]
     Active Substance: VITAMIN D NOS
     Indication: ROUTINE HEALTH MAINTENANCE
     Route: 065

REACTIONS (2)
  - Drug ineffective [Unknown]
  - Inappropriate schedule of product administration [Unknown]

NARRATIVE: CASE EVENT DATE: 20170108
